FAERS Safety Report 19587901 (Version 1)
Quarter: 2021Q3

REPORT INFORMATION
  Report Type: Spontaneous
  Country: US (occurrence: US)
  Receive Date: 20210720
  Receipt Date: 20210720
  Transmission Date: 20211014
  Serious: No
  Sender: FDA-Public Use
  Company Number: None

PATIENT
  Sex: Female

DRUGS (1)
  1. IBRANCE [Suspect]
     Active Substance: PALBOCICLIB
     Indication: BREAST CANCER FEMALE
     Route: 048
     Dates: start: 20210712

REACTIONS (6)
  - Pain [None]
  - Stomatitis [None]
  - Abdominal pain [None]
  - Loss of personal independence in daily activities [None]
  - Fatigue [None]
  - Mouth ulceration [None]
